FAERS Safety Report 6351433-8 (Version None)
Quarter: 2009Q3

REPORT INFORMATION
  Report Type: 
  Country: None (occurrence: None)
  Receive Date: 20090912
  Receipt Date: 20090622
  Transmission Date: 20100115
  Serious: No
  Sender: FDA-Public Use
  Company Number: US-ABBOTT-07P-163-0417260-00

PATIENT
  Sex: Female
  Weight: 76.726 kg

DRUGS (9)
  1. HUMIRA [Suspect]
     Indication: PSORIATIC ARTHROPATHY
     Route: 058
     Dates: start: 20070731
  2. ALENDRONATE SODIUM [Concomitant]
     Indication: DRUG USE FOR UNKNOWN INDICATION
  3. PREGABALIN [Concomitant]
     Indication: DRUG USE FOR UNKNOWN INDICATION
  4. CARISOPRODOL [Concomitant]
     Indication: DRUG USE FOR UNKNOWN INDICATION
  5. DIAZEPAM [Concomitant]
     Indication: DRUG USE FOR UNKNOWN INDICATION
  6. SERTRALINE HCL [Concomitant]
     Indication: DRUG USE FOR UNKNOWN INDICATION
  7. DICLOFENAC SODIUM [Concomitant]
     Indication: DRUG USE FOR UNKNOWN INDICATION
  8. CALCIUM PLUS D [Concomitant]
     Indication: DRUG USE FOR UNKNOWN INDICATION
  9. ASCORBIC ACID [Concomitant]
     Indication: DRUG USE FOR UNKNOWN INDICATION

REACTIONS (1)
  - INCORRECT DOSE ADMINISTERED [None]
